FAERS Safety Report 12587450 (Version 5)
Quarter: 2019Q2

REPORT INFORMATION
  Report Type: Report from Study
  Country: BR (occurrence: BR)
  Receive Date: 20160725
  Receipt Date: 20190530
  Transmission Date: 20190711
  Serious: Yes (Other)
  Sender: FDA-Public Use
  Company Number: PHHY2016BR100927

PATIENT
  Sex: Female
  Weight: 82 kg

DRUGS (4)
  1. LOSARTAN. [Concomitant]
     Active Substance: LOSARTAN
     Indication: HYPERTENSION
     Dosage: 2 DF, QD
     Route: 048
     Dates: start: 2015
  2. CABERGOLINE. [Concomitant]
     Active Substance: CABERGOLINE
     Indication: ACROMEGALY
     Dosage: 0.5 DF, QW2 (HALF TABLET ON MONDY AND OTHER HALF ON THURSDAY)
     Route: 048
  3. SANDOSTATIN LAR DEPOT [Suspect]
     Active Substance: OCTREOTIDE ACETATE
     Dosage: 30 MG, UNK
     Route: 065
     Dates: start: 20150414
  4. SANDOSTATIN LAR DEPOT [Suspect]
     Active Substance: OCTREOTIDE ACETATE
     Indication: ACROMEGALY
     Dosage: 30 MG, QMO (ONCE A MONTH)
     Route: 048
     Dates: start: 201501

REACTIONS (16)
  - Fumbling [Unknown]
  - Weight decreased [Not Recovered/Not Resolved]
  - Incorrect route of product administration [Unknown]
  - Nervous system disorder [Unknown]
  - Menorrhagia [Unknown]
  - Nervousness [Not Recovered/Not Resolved]
  - Blood triglycerides increased [Unknown]
  - Sleep apnoea syndrome [Unknown]
  - Yellow skin [Not Recovered/Not Resolved]
  - Neoplasm progression [Unknown]
  - Stress [Unknown]
  - Hyperhidrosis [Not Recovered/Not Resolved]
  - Tremor [Unknown]
  - Dyspnoea [Unknown]
  - Anxiety [Not Recovered/Not Resolved]
  - Heart rate increased [Not Recovered/Not Resolved]
